FAERS Safety Report 12975686 (Version 1)
Quarter: 2016Q4

REPORT INFORMATION
  Report Type: Spontaneous
  Country: US (occurrence: US)
  Receive Date: 20161125
  Receipt Date: 20161125
  Transmission Date: 20170207
  Serious: No
  Sender: FDA-Public Use
  Company Number: US-ELI_LILLY_AND_COMPANY-US201611008598

PATIENT
  Age: 74 Year
  Sex: Female

DRUGS (3)
  1. LANTUS [Concomitant]
     Active Substance: INSULIN GLARGINE
  2. HUMULIN N [Suspect]
     Active Substance: INSULIN HUMAN
     Indication: TYPE 2 DIABETES MELLITUS
     Dosage: 18 U, BID
     Route: 065
  3. HUMULIN N [Suspect]
     Active Substance: INSULIN HUMAN
     Dosage: 18 U, BID
     Route: 065

REACTIONS (3)
  - Blood glucose increased [Recovered/Resolved]
  - Visual acuity reduced [Unknown]
  - Accidental underdose [Unknown]

NARRATIVE: CASE EVENT DATE: 201601
